FAERS Safety Report 16082359 (Version 1)
Quarter: 2019Q1

REPORT INFORMATION
  Report Type: Spontaneous
  Country: CA (occurrence: CA)
  Receive Date: 20190318
  Receipt Date: 20190318
  Transmission Date: 20190418
  Serious: Yes (Other)
  Sender: FDA-Public Use
  Company Number: CA-CONCORDIA PHARMACEUTICALS INC.-GSH201903-000651

PATIENT
  Age: 41 Year
  Sex: Female

DRUGS (3)
  1. METHOTREXATE. [Concomitant]
     Active Substance: METHOTREXATE
     Dates: start: 20181102
  2. TOFACITINIB [Concomitant]
     Active Substance: TOFACITINIB
  3. HYDROXYCHLOROQUINE [Suspect]
     Active Substance: HYDROXYCHLOROQUINE
     Indication: PRODUCT USED FOR UNKNOWN INDICATION
     Route: 048
     Dates: start: 20180531

REACTIONS (5)
  - Musculoskeletal stiffness [Unknown]
  - Seronegative arthritis [Unknown]
  - Drug ineffective [Unknown]
  - Hypoaesthesia [Unknown]
  - Pain [Unknown]
